FAERS Safety Report 26044062 (Version 2)
Quarter: 2025Q4

REPORT INFORMATION
  Report Type: Report from Study
  Country: ZA (occurrence: ZA)
  Receive Date: 20251114
  Receipt Date: 20251123
  Transmission Date: 20260118
  Serious: Yes (Other)
  Sender: ROCHE
  Company Number: ZA-ROCHE-10000080748

PATIENT
  Sex: Female

DRUGS (2)
  1. VABYSMO [Suspect]
     Active Substance: FARICIMAB-SVOA
     Indication: Macular degeneration
     Dosage: 2ND DOSE - 11-SEPT-2024 (4 WEEKS)?3RD DOSE - 23-OCT-2024 (6 WEEKS)
     Route: 050
     Dates: start: 20240814
  2. VABYSMO [Suspect]
     Active Substance: FARICIMAB-SVOA
     Indication: Retinal vascular occlusion
     Dosage: 2ND DOSE - 11-SEPT-2024 (4 WEEKS)?3RD DOSE - 23-OCT-2024 (6 WEEKS)
     Route: 050

REACTIONS (6)
  - Off label use [Unknown]
  - Optical coherence tomography abnormal [Unknown]
  - Off label use [Unknown]
  - Retinal thickening [Unknown]
  - Visual acuity tests abnormal [Unknown]
  - Malaise [Unknown]
